FAERS Safety Report 23335196 (Version 1)
Quarter: 2023Q4

REPORT INFORMATION
  Report Type: Other
  Country: JP (occurrence: JP)
  Receive Date: 20231225
  Receipt Date: 20231225
  Transmission Date: 20240109
  Serious: Yes (Hospitalization)
  Sender: FDA-Public Use
  Company Number: JP-CHUGAI-2023030772

PATIENT
  Age: 7 Decade
  Sex: Female

DRUGS (5)
  1. ENSPRYNG [Suspect]
     Active Substance: SATRALIZUMAB-MWGE
     Indication: Neuromyelitis optica spectrum disorder
     Route: 058
     Dates: start: 20210506, end: 20211104
  2. ENSPRYNG [Suspect]
     Active Substance: SATRALIZUMAB-MWGE
     Route: 058
     Dates: start: 20211202, end: 20231106
  3. PREDONINE [Concomitant]
     Active Substance: PREDNISOLONE
     Indication: Neuromyelitis optica spectrum disorder
     Dates: start: 20190219
  4. PREDONINE [Concomitant]
     Active Substance: PREDNISOLONE
     Dates: start: 20211105, end: 20220506
  5. PREDONINE [Concomitant]
     Active Substance: PREDNISOLONE

REACTIONS (1)
  - COVID-19 [Recovered/Resolved]

NARRATIVE: CASE EVENT DATE: 20230719
